FAERS Safety Report 15278252 (Version 1)
Quarter: 2018Q3

REPORT INFORMATION
  Report Type: Report from Study
  Country: None (occurrence: GB)
  Receive Date: 20180814
  Receipt Date: 20180814
  Transmission Date: 20181010
  Serious: Yes (Hospitalization, Other)
  Sender: FDA-Public Use
  Company Number: GB-BAUSCH-BL-2018-021868

PATIENT
  Age: 75 Year
  Sex: Female

DRUGS (3)
  1. PREDNISOLONE. [Suspect]
     Active Substance: PREDNISOLONE
     Indication: RHEUMATOID ARTHRITIS
     Route: 048
     Dates: start: 20180420, end: 20180424
  2. ABATACEPT [Suspect]
     Active Substance: ABATACEPT
     Indication: RHEUMATOID ARTHRITIS
     Route: 058
     Dates: start: 201801, end: 20180607
  3. PREDNISOLONE. [Suspect]
     Active Substance: PREDNISOLONE
     Route: 048

REACTIONS (13)
  - Chest discomfort [Unknown]
  - Full blood count decreased [Unknown]
  - Eye inflammation [Not Recovered/Not Resolved]
  - Cough [Recovering/Resolving]
  - Eye ulcer [Not Recovered/Not Resolved]
  - Pseudomonas infection [Recovering/Resolving]
  - Visual impairment [Not Recovered/Not Resolved]
  - Eye abscess [Recovering/Resolving]
  - Movement disorder [Unknown]
  - Eye infection [Not Recovered/Not Resolved]
  - Influenza [Recovering/Resolving]
  - Eye pain [Not Recovered/Not Resolved]
  - Rheumatoid arthritis [Unknown]

NARRATIVE: CASE EVENT DATE: 201801
